FAERS Safety Report 5179224-4 (Version None)
Quarter: 2006Q4

REPORT INFORMATION
  Report Type: 
  Country: None (occurrence: None)
  Receive Date: 20061211
  Receipt Date: 20061206
  Transmission Date: 20070319
  Serious: Yes (Other)
  Sender: FDA-Public Use
  Company Number: ISSUE # 41

PATIENT
  Age: 42 Year
  Sex: Female

DRUGS (11)
  1. BUTALBITAL [Suspect]
     Indication: MIGRAINE
     Dosage: 3 PER DAY, ORAL
     Route: 048
     Dates: start: 20061205, end: 20061206
  2. LEVOTHROID [Concomitant]
  3. ESTRACE [Concomitant]
  4. BENTYL [Concomitant]
  5. ACTONEL [Concomitant]
  6. SOMA: DAILY ESGIC PLUS [Concomitant]
  7. ABC W/CODEINE [Concomitant]
  8. FLONASE [Concomitant]
  9. VENTOLIN [Concomitant]
  10. AZMACORT [Concomitant]
  11. PREDNISONE: AS NEEDED [Concomitant]

REACTIONS (6)
  - DYSGEUSIA [None]
  - HYPOAESTHESIA ORAL [None]
  - LIP SWELLING [None]
  - MUSCLE SPASMS [None]
  - PHARMACEUTICAL PRODUCT COMPLAINT [None]
  - SWOLLEN TONGUE [None]
